FAERS Safety Report 8679235 (Version 2)
Quarter: 2012Q4

REPORT INFORMATION
  Report Type: Report from Study
  Country: CA (occurrence: CA)
  Receive Date: 20120724
  Receipt Date: 20121010
  Transmission Date: 20130627
  Serious: Yes (Death, Life-Threatening)
  Sender: FDA-Public Use
  Company Number: CA-JNJFOC-20120707830

PATIENT
  Sex: Female
  Weight: 86.3 kg

DRUGS (7)
  1. REMICADE [Suspect]
     Indication: PSORIASIS
     Route: 042
     Dates: start: 20110516, end: 20120413
  2. CITALOPRAM [Concomitant]
     Route: 048
  3. PREDNISONE [Concomitant]
     Route: 048
  4. VITAMIN D [Concomitant]
     Route: 048
  5. SENOKOT [Concomitant]
     Route: 048
  6. NAPROXEN [Concomitant]
     Route: 048
  7. TYLENOL NO 4 [Concomitant]
     Route: 048

REACTIONS (2)
  - Lung neoplasm malignant [Not Recovered/Not Resolved]
  - Death [Fatal]
